FAERS Safety Report 8871330 (Version 1)
Quarter: 2012Q4

REPORT INFORMATION
  Report Type: 
  Country: US (occurrence: US)
  Receive Date: 20121026
  Receipt Date: 20121026
  Transmission Date: 20130627
  Serious: No
  Sender: FDA-Public Use
  Company Number: US-AMGEN-USASP2012041910

PATIENT
  Age: 58 Year
  Sex: Female
  Weight: 126.53 kg

DRUGS (8)
  1. ENBREL [Suspect]
     Indication: PRODUCT USED FOR UNKNOWN INDICATION
     Dosage: 50 mg/ml, qwk
     Route: 058
  2. CELEBREX [Concomitant]
     Dosage: 100 mg, UNK
  3. FUROSEMIDE [Concomitant]
     Dosage: 40 mg, UNK
  4. CITRACAL PLUS [Concomitant]
  5. LEVOTHYROXINE [Concomitant]
     Dosage: 88 mcg, UNK
  6. ASPIRIN [Concomitant]
     Dosage: 81 mg, UNK
  7. MULTIVITAMIN                       /00097801/ [Concomitant]
     Dosage: UNK
  8. POTASSIUM CHLORIDE [Concomitant]
     Dosage: 10 mEq, UNK

REACTIONS (1)
  - Hepatic enzyme increased [Unknown]
